FAERS Safety Report 4579828-3 (Version None)
Quarter: 2005Q1

REPORT INFORMATION
  Report Type: 
  Country: None (occurrence: None)
  Receive Date: 20050210
  Receipt Date: 20050128
  Transmission Date: 20050727
  Serious: Yes (Death)
  Sender: FDA-Public Use
  Company Number: 2005013861

PATIENT
  Age: 72 Year
  Sex: Male

DRUGS (3)
  1. CELEBREX [Suspect]
     Indication: RHEUMATOID ARTHRITIS
     Dosage: 400 MG (200 MG 2 IN 1 D) ORAL
     Route: 048
     Dates: start: 20010101
  2. METHYLPREDNISOLONE [Concomitant]
  3. RABEPRAZOLE SODIUM [Concomitant]

REACTIONS (10)
  - ACUTE MYOCARDIAL INFARCTION [None]
  - AORTIC VALVE DISEASE [None]
  - CHRONIC OBSTRUCTIVE PULMONARY DISEASE [None]
  - DRUG INTOLERANCE [None]
  - GASTRITIS [None]
  - MALAISE [None]
  - MITRAL VALVE DISEASE [None]
  - NAUSEA [None]
  - SUDDEN DEATH [None]
  - VOMITING [None]
